FAERS Safety Report 5898525-5 (Version None)
Quarter: 2008Q3

REPORT INFORMATION
  Report Type: 
  Country: None (occurrence: None)
  Receive Date: 20080925
  Receipt Date: 20071219
  Transmission Date: 20090109
  Serious: No
  Sender: FDA-Public Use
  Company Number: A0701038A

PATIENT
  Sex: Female

DRUGS (1)
  1. BUPROPION HYDROCHLORIDE [Suspect]
     Indication: DRUG USE FOR UNKNOWN INDICATION
     Route: 048

REACTIONS (6)
  - ADVERSE EVENT [None]
  - ANGER [None]
  - DRUG INEFFECTIVE [None]
  - FEAR [None]
  - ILL-DEFINED DISORDER [None]
  - SENSORY DISTURBANCE [None]
